FAERS Safety Report 10709127 (Version 1)
Quarter: 2015Q1

REPORT INFORMATION
  Report Type: Report from Study
  Country: TH (occurrence: TH)
  Receive Date: 20150114
  Receipt Date: 20150114
  Transmission Date: 20150721
  Serious: Yes (Death)
  Sender: FDA-Public Use
  Company Number: TH-009507513-1501THA002949

PATIENT
  Age: 47 Year
  Sex: Male

DRUGS (6)
  1. RIBAVIRIN. [Suspect]
     Active Substance: RIBAVIRIN
     Indication: HEPATITIS C
     Dosage: 400 MG, BID (STRENGTH: 200 MG, FORMULAITON ALSO REPROTED AS TABLET )
     Route: 048
     Dates: start: 20141015, end: 20141112
  2. PEGINTERFERON ALFA-2B [Suspect]
     Active Substance: PEGINTERFERON ALFA-2B
     Indication: HEPATITIS C
     Dosage: 0.4 ML DAILY, QW (STRENGTH: 80 MCG, FORMULATION ALSO REPORTED AS PEN)
     Route: 058
     Dates: start: 20141015, end: 20141112
  3. TENOFOVIR DISOPROXIL FUMARATE [Concomitant]
     Active Substance: TENOFOVIR DISOPROXIL FUMARATE
     Indication: HIV INFECTION
     Dosage: 300 MG, QD
     Route: 048
     Dates: start: 20121024, end: 20141112
  4. LAMIVUDINE. [Concomitant]
     Active Substance: LAMIVUDINE
     Indication: HIV INFECTION
     Dosage: 300 MG, QD
     Route: 048
     Dates: start: 20070423, end: 20141112
  5. EFAVIRENZ [Concomitant]
     Active Substance: EFAVIRENZ
     Indication: HIV INFECTION
     Dosage: 600 MG, QD
     Route: 048
     Dates: start: 20070423, end: 20141112
  6. DIACETYLMORPHINE [Suspect]
     Active Substance: DIACETYLMORPHINE
     Dosage: UNK
     Dates: start: 201409, end: 201411

REACTIONS (1)
  - Overdose [Fatal]

NARRATIVE: CASE EVENT DATE: 20141112
